FAERS Safety Report 14503124 (Version 1)
Quarter: 2018Q1

REPORT INFORMATION
  Report Type: Spontaneous
  Country: US (occurrence: US)
  Receive Date: 20180208
  Receipt Date: 20180208
  Transmission Date: 20180509
  Serious: No
  Sender: FDA-Public Use
  Company Number: US-PFIZER INC-2018055822

PATIENT
  Age: 65 Year
  Sex: Female

DRUGS (4)
  1. NEOMYCIN SULFATE. [Suspect]
     Active Substance: NEOMYCIN SULFATE
     Dosage: UNK
  2. POLYMYXIN [Suspect]
     Active Substance: POLYMYXIN
     Dosage: UNK
  3. BACITRACIN. [Suspect]
     Active Substance: BACITRACIN
     Dosage: UNK
  4. PRAMOXINE [Suspect]
     Active Substance: PRAMOXINE
     Dosage: UNK

REACTIONS (1)
  - Drug hypersensitivity [Unknown]
